FAERS Safety Report 11345468 (Version 1)
Quarter: 2015Q3

REPORT INFORMATION
  Report Type: Spontaneous
  Country: US (occurrence: None)
  Receive Date: 20150805
  Receipt Date: 20150805
  Transmission Date: 20151125
  Serious: No
  Sender: FDA-Public Use
  Company Number: None

PATIENT
  Sex: Female

DRUGS (3)
  1. MAKENA [Suspect]
     Active Substance: HYDROXYPROGESTERONE CAPROATE
     Indication: PREMATURE LABOUR
     Dosage: UNTIL LABOR
     Route: 058
     Dates: start: 20150708
  2. FOLIC ACID. [Concomitant]
     Active Substance: FOLIC ACID
  3. PRENATAL [Concomitant]
     Active Substance: VITAMINS

REACTIONS (1)
  - Drug dose omission [None]
